FAERS Safety Report 24025227 (Version 1)
Quarter: 2024Q2

REPORT INFORMATION
  Report Type: Spontaneous
  Country: US (occurrence: US)
  Receive Date: 20240628
  Receipt Date: 20240628
  Transmission Date: 20240716
  Serious: No
  Sender: FDA-Public Use
  Company Number: US-AUROBINDO-AUR-APL-2023-060690

PATIENT
  Sex: Female

DRUGS (3)
  1. AZELASTINE HYDROCHLORIDE [Suspect]
     Active Substance: AZELASTINE HYDROCHLORIDE
     Indication: Rhinorrhoea
     Dosage: 01 DROP IN EACH NOSTRIL TWICE A DAY
     Route: 045
  2. AZELASTINE HYDROCHLORIDE [Suspect]
     Active Substance: AZELASTINE HYDROCHLORIDE
     Indication: Nasal congestion
  3. AZELASTINE HYDROCHLORIDE [Suspect]
     Active Substance: AZELASTINE HYDROCHLORIDE
     Indication: Sinusitis

REACTIONS (4)
  - Product dose omission issue [Unknown]
  - Device breakage [Unknown]
  - Product container seal issue [Unknown]
  - Product leakage [Unknown]
